FAERS Safety Report 4984179-9 (Version None)
Quarter: 2006Q2

REPORT INFORMATION
  Report Type: 
  Country: None (occurrence: None)
  Receive Date: 20060425
  Receipt Date: 20060425
  Transmission Date: 20061013
  Serious: No
  Sender: FDA-Public Use
  Company Number: None

PATIENT
  Age: 70 Year
  Sex: Female
  Weight: 74.8435 kg

DRUGS (2)
  1. GABAPENTIN [Suspect]
     Indication: MULTIPLE SCLEROSIS
     Dosage: 300MG  TID  PO
     Route: 048
  2. GABAPENTIN [Suspect]
     Indication: NEURALGIA
     Dosage: 300MG  TID  PO
     Route: 048

REACTIONS (2)
  - ABDOMINAL DISCOMFORT [None]
  - NAUSEA [None]
